FAERS Safety Report 13413555 (Version 4)
Quarter: 2017Q2

REPORT INFORMATION
  Report Type: Spontaneous
  Country: US (occurrence: US)
  Receive Date: 20170328
  Receipt Date: 20170503
  Transmission Date: 20170830
  Serious: Yes (Other)
  Sender: FDA-Public Use
  Company Number: US-LUPIN (EUROPE) LIMITED-2017-01265

PATIENT
  Age: 24 Year
  Sex: Female

DRUGS (1)
  1. MY WAY [Suspect]
     Active Substance: LEVONORGESTREL
     Indication: POST COITAL CONTRACEPTION
     Dosage: 1.5 MG, UNK
     Route: 048
     Dates: start: 201603

REACTIONS (2)
  - Ruptured ectopic pregnancy [Unknown]
  - Ectopic pregnancy under hormonal contraception [Unknown]

NARRATIVE: CASE EVENT DATE: 201604
